FAERS Safety Report 22612222 (Version 1)
Quarter: 2023Q2

REPORT INFORMATION
  Report Type: Spontaneous
  Country: US (occurrence: US)
  Receive Date: 20230617
  Receipt Date: 20230617
  Transmission Date: 20230721
  Serious: Yes (Other)
  Sender: FDA-Public Use
  Company Number: US-AMGEN-USASP2023101899

PATIENT

DRUGS (2)
  1. TALIMOGENE LAHERPAREPVEC [Suspect]
     Active Substance: TALIMOGENE LAHERPAREPVEC
     Indication: Malignant melanoma
     Dosage: UNK
     Route: 036
  2. PEMBROLIZUMAB [Suspect]
     Active Substance: PEMBROLIZUMAB
     Indication: Malignant melanoma
     Dosage: 200 MILLIGRAM, Q3WK
     Route: 042

REACTIONS (6)
  - Hypoxia [Unknown]
  - Therapy non-responder [Unknown]
  - Therapy partial responder [Unknown]
  - Lymphocyte count decreased [Unknown]
  - Off label use [Unknown]
  - Injection site reaction [Unknown]
